FAERS Safety Report 11107807 (Version 1)
Quarter: 2015Q2

REPORT INFORMATION
  Report Type: Spontaneous
  Country: DE (occurrence: DE)
  Receive Date: 20150512
  Receipt Date: 20150512
  Transmission Date: 20150821
  Serious: Yes (Other)
  Sender: FDA-Public Use
  Company Number: DE-PFIZER INC-2015137807

PATIENT
  Age: 65 Year
  Sex: Female
  Weight: 55 kg

DRUGS (1)
  1. NEURONTIN [Suspect]
     Active Substance: GABAPENTIN
     Indication: EPILEPSY
     Dosage: 1800 MG, DAILY
     Route: 048
     Dates: start: 2003, end: 2015

REACTIONS (5)
  - Alopecia [Unknown]
  - Urinary tract infection [Unknown]
  - Urinary incontinence [Unknown]
  - Drug withdrawal syndrome [Unknown]
  - Respiratory tract infection [Unknown]
